FAERS Safety Report 6795841-X (Version None)
Quarter: 2010Q2

REPORT INFORMATION
  Report Type: 
  Country: None (occurrence: None)
  Receive Date: 20100625
  Receipt Date: 20100617
  Transmission Date: 20101027
  Serious: Yes (Hospitalization)
  Sender: FDA-Public Use
  Company Number: A0865734A

PATIENT
  Age: 2 Day
  Sex: Male

DRUGS (2)
  1. ZOFRAN [Suspect]
     Indication: ACCIDENTAL DRUG INTAKE BY CHILD
     Dosage: 2MG SINGLE DOSE
     Route: 042
     Dates: start: 20100527, end: 20100527
  2. NO CONCURRENT MEDICATION [Concomitant]

REACTIONS (5)
  - ACCIDENTAL DRUG INTAKE BY CHILD [None]
  - BLOOD PRESSURE DECREASED [None]
  - HEART RATE DECREASED [None]
  - JAUNDICE [None]
  - WEIGHT DECREASED [None]
